FAERS Safety Report 23471184 (Version 2)
Quarter: 2024Q2

REPORT INFORMATION
  Report Type: Spontaneous
  Country: CA (occurrence: CA)
  Receive Date: 20240202
  Receipt Date: 20240410
  Transmission Date: 20240716
  Serious: Yes (Hospitalization, Disabling, Other)
  Sender: FDA-Public Use
  Company Number: CA-PFIZER INC-202400030529

PATIENT
  Age: 39 Year
  Sex: Female

DRUGS (2)
  1. METHOTREXATE SODIUM [Suspect]
     Active Substance: METHOTREXATE SODIUM
     Indication: Granulomatosis with polyangiitis
     Dosage: 1 DF, UNKNOWN DOSE, TO STOP MTX WHEN SHE STARTS RUXIENCE
     Route: 065
  2. RITUXIMAB [Concomitant]
     Active Substance: RITUXIMAB
     Indication: Granulomatosis with polyangiitis
     Dosage: 500 MG, EVERY 6 MONTH
     Route: 042
     Dates: start: 20240215

REACTIONS (6)
  - Contusion [Not Recovered/Not Resolved]
  - Onychomadesis [Not Recovered/Not Resolved]
  - Oral mucosal blistering [Unknown]
  - Mouth injury [Unknown]
  - Gastric ulcer [Unknown]
  - Off label use [Unknown]

NARRATIVE: CASE EVENT DATE: 20240101
